FAERS Safety Report 5559107-8 (Version None)
Quarter: 2007Q4

REPORT INFORMATION
  Report Type: 
  Country: None (occurrence: None)
  Receive Date: 20071214
  Receipt Date: 20070918
  Transmission Date: 20080405
  Serious: No
  Sender: FDA-Public Use
  Company Number: US-ABBOTT-07P-163-0417538-00

PATIENT
  Sex: Female
  Weight: 119 kg

DRUGS (5)
  1. HUMIRA [Suspect]
     Indication: CROHN'S DISEASE
     Dosage: SYRINGE
     Route: 058
     Dates: start: 20070717
  2. HUMIRA [Suspect]
     Dosage: PEN
     Route: 058
     Dates: start: 20070620, end: 20070717
  3. MERCAPTOPURINE [Concomitant]
     Indication: CROHN'S DISEASE
     Route: 048
     Dates: start: 20070101
  4. VICODIN [Concomitant]
     Indication: SURGERY
     Route: 048
     Dates: start: 20040101
  5. VICODIN [Concomitant]
     Indication: ABSCESS

REACTIONS (1)
  - SINUSITIS [None]
